APPROVED DRUG PRODUCT: IMIPRAMINE HYDROCHLORIDE
Active Ingredient: IMIPRAMINE HYDROCHLORIDE
Strength: 10MG
Dosage Form/Route: TABLET;ORAL
Application: A083799 | Product #001
Applicant: ROXANE LABORATORIES INC
Approved: Approved Prior to Jan 1, 1982 | RLD: No | RS: No | Type: DISCN